FAERS Safety Report 8511164-2 (Version None)
Quarter: 2012Q3

REPORT INFORMATION
  Report Type: 
  Country: None (occurrence: None)
  Receive Date: 20120716
  Receipt Date: 20120705
  Transmission Date: 20120928
  Serious: Yes (Death)
  Sender: FDA-Public Use
  Company Number: US-SANOFI-AVENTIS-2012SA048160

PATIENT
  Age: 63 Year
  Sex: Male

DRUGS (9)
  1. METOLAZONE [Concomitant]
  2. PLAVIX [Suspect]
  3. LOSARTAN POTASSIUM [Concomitant]
  4. HYDRALAZINE HYDROCHLORIDE [Concomitant]
  5. LASIX [Concomitant]
  6. SIMVASTATIN [Concomitant]
  7. METOPROLOL TARTRATE [Concomitant]
  8. DIGOXIN [Concomitant]
  9. COUMADIN [Concomitant]

REACTIONS (1)
  - DEATH [None]
